FAERS Safety Report 8469715-2 (Version None)
Quarter: 2012Q2

REPORT INFORMATION
  Report Type: 
  Country: None (occurrence: None)
  Receive Date: 20120626
  Receipt Date: 20120622
  Transmission Date: 20120825
  Serious: No
  Sender: FDA-Public Use
  Company Number: US-PFIZER INC-2012132581

PATIENT
  Sex: Male
  Weight: 69.841 kg

DRUGS (5)
  1. LIPITOR [Suspect]
     Indication: BLOOD CHOLESTEROL INCREASED
     Dosage: 10 MG, DAILY
     Dates: start: 20040101
  2. ASPIRIN [Concomitant]
     Dosage: 81 MG, DAILY
  3. LIPITOR [Suspect]
     Dosage: 20 MG, DAILY
     Dates: end: 20120401
  4. NORVASC [Concomitant]
     Indication: HYPERTENSION
     Dosage: 10 MG, DAILY
  5. ATORVASTATIN CALCIUM [Suspect]
     Indication: BLOOD CHOLESTEROL INCREASED
     Dosage: 20 MG, DAILY
     Dates: start: 20120101, end: 20120531

REACTIONS (14)
  - FLATULENCE [None]
  - HYPOAESTHESIA [None]
  - MYALGIA [None]
  - INJURY [None]
  - MALAISE [None]
  - DIZZINESS [None]
  - CHEST PAIN [None]
  - METABOLIC DISORDER [None]
  - ARTHRALGIA [None]
  - PAIN [None]
  - WEIGHT FLUCTUATION [None]
  - ABDOMINAL PAIN UPPER [None]
  - ABDOMINAL DISCOMFORT [None]
  - MUSCLE SPASMS [None]
